FAERS Safety Report 9964119 (Version 1)
Quarter: 2014Q1

REPORT INFORMATION
  Report Type: Spontaneous
  Country: IT (occurrence: IT)
  Receive Date: 20140305
  Receipt Date: 20140305
  Transmission Date: 20141002
  Serious: Yes (Hospitalization)
  Sender: FDA-Public Use
  Company Number: PHHY2014IT026162

PATIENT
  Age: 67 Year
  Sex: Female

DRUGS (7)
  1. TEGRETOL [Suspect]
     Indication: EPILEPSY
     Dosage: 400 MG, DAILY
     Route: 048
     Dates: start: 20131204, end: 20140131
  2. ESOMEPRAZOLE [Concomitant]
     Dosage: UNK UKN, UNK
  3. ABILIFY [Concomitant]
     Dosage: UNK UKN, UNK
  4. TRITTICO [Concomitant]
     Dosage: UNK UKN, UNK
  5. SEROQUEL [Concomitant]
     Dosage: UNK UKN, UNK
  6. KEPPRA [Concomitant]
     Dosage: UNK UKN, UNK
  7. LASIX [Concomitant]
     Dosage: UNK UKN, UNK

REACTIONS (3)
  - Dermatitis exfoliative [Recovered/Resolved]
  - Face oedema [Recovered/Resolved]
  - Skin exfoliation [Recovered/Resolved]
